FAERS Safety Report 12139305 (Version 1)
Quarter: 2016Q1

REPORT INFORMATION
  Report Type: Spontaneous
  Country: US (occurrence: US)
  Receive Date: 20160303
  Receipt Date: 20160303
  Transmission Date: 20160526
  Serious: Yes (Other)
  Sender: FDA-Public Use
  Company Number: US-009507513-1603USA000445

PATIENT
  Sex: Female
  Weight: 58.97 kg

DRUGS (1)
  1. NOROXIN [Suspect]
     Active Substance: NORFLOXACIN
     Dosage: UNK
     Route: 048
     Dates: start: 1994

REACTIONS (4)
  - Liver function test increased [Unknown]
  - Liver disorder [Not Recovered/Not Resolved]
  - Hepatic enzyme increased [Not Recovered/Not Resolved]
  - Gallbladder non-functioning [Not Recovered/Not Resolved]

NARRATIVE: CASE EVENT DATE: 1996
